FAERS Safety Report 6994837-2 (Version None)
Quarter: 2010Q3

REPORT INFORMATION
  Report Type: 
  Country: None (occurrence: None)
  Receive Date: 20100917
  Receipt Date: 20090605
  Transmission Date: 20110219
  Serious: Yes (Other)
  Sender: FDA-Public Use
  Company Number: HQWYE274308NOV04

PATIENT
  Sex: Female

DRUGS (3)
  1. PREMPRO [Suspect]
  2. PREMARIN [Suspect]
  3. PROVERA [Suspect]

REACTIONS (5)
  - BREAST CANCER [None]
  - CELLULITIS [None]
  - FAT NECROSIS [None]
  - HEPATIC NEOPLASM MALIGNANT [None]
  - HEPATITIS C [None]
